FAERS Safety Report 6312888-8 (Version None)
Quarter: 2009Q3

REPORT INFORMATION
  Report Type: 
  Country: None (occurrence: None)
  Receive Date: 20090818
  Receipt Date: 20090810
  Transmission Date: 20100115
  Serious: Yes (Other)
  Sender: FDA-Public Use
  Company Number: GB-TYCO HEALTHCARE/MALLINCKRODT-T200901500

PATIENT

DRUGS (1)
  1. OPTIRAY 350 [Suspect]
     Indication: UROLOGICAL EXAMINATION
     Dosage: 20 ML, SINGLE
     Route: 042
     Dates: start: 20090714, end: 20090714

REACTIONS (1)
  - HYPERSENSITIVITY [None]
